FAERS Safety Report 13539848 (Version 1)
Quarter: 2017Q2

REPORT INFORMATION
  Report Type: Spontaneous
  Country: US (occurrence: US)
  Receive Date: 20170512
  Receipt Date: 20170512
  Transmission Date: 20170830
  Serious: No
  Sender: FDA-Public Use
  Company Number: US-JNJFOC-20170428777

PATIENT
  Age: 84 Year
  Sex: Female
  Weight: 86.18 kg

DRUGS (2)
  1. ZYRTEC [Suspect]
     Active Substance: CETIRIZINE HYDROCHLORIDE
     Indication: MULTIPLE ALLERGIES
     Dosage: EVENING
     Route: 048
     Dates: start: 20170405
  2. ZYRTEC [Suspect]
     Active Substance: CETIRIZINE HYDROCHLORIDE
     Route: 048

REACTIONS (4)
  - Drug administration error [Recovered/Resolved]
  - Constipation [Recovered/Resolved]
  - Therapeutic response unexpected [Unknown]
  - Abnormal faeces [Recovered/Resolved]

NARRATIVE: CASE EVENT DATE: 20170405
